FAERS Safety Report 12427932 (Version 1)
Quarter: 2016Q2

REPORT INFORMATION
  Report Type: Spontaneous
  Country: US (occurrence: None)
  Receive Date: 20160601
  Receipt Date: 20160601
  Transmission Date: 20160815
  Serious: Yes (Disabling)
  Sender: FDA-Public Use
  Company Number: None

PATIENT
  Age: 55 Year
  Sex: Female
  Weight: 55.79 kg

DRUGS (8)
  1. QUERCETIN [Concomitant]
     Active Substance: QUERCETIN
  2. TART CHERRY JUICE [Concomitant]
  3. KRILL OIL [Concomitant]
     Active Substance: DIETARY SUPPLEMENT
  4. WHOLE FOOD MULTI VITAMIN [Concomitant]
  5. CALCIUM/MAGNESIUM [Concomitant]
  6. CIPROFLOXACIN - GENERIC, 500 MG [Suspect]
     Active Substance: CIPROFLOXACIN
     Indication: SINUSITIS
     Route: 048
     Dates: start: 20070223, end: 20070225
  7. TUMERIC [Concomitant]
     Active Substance: TURMERIC
  8. TOPRICIN [Concomitant]

REACTIONS (6)
  - Balance disorder [None]
  - Intracranial pressure increased [None]
  - Insomnia [None]
  - Disorientation [None]
  - Fatigue [None]
  - Activities of daily living impaired [None]

NARRATIVE: CASE EVENT DATE: 20070223
